FAERS Safety Report 8922241 (Version 2)
Quarter: 2012Q4

REPORT INFORMATION
  Report Type: 
  Country: GB (occurrence: GB)
  Receive Date: 20121123
  Receipt Date: 20121203
  Transmission Date: 20130627
  Serious: Yes (Other)
  Sender: FDA-Public Use
  Company Number: GB-PFIZER INC-GBWYE460825FEB05

PATIENT
  Age: 60 Year
  Sex: Female
  Weight: 75.9 kg

DRUGS (6)
  1. IBUPROFEN [Suspect]
     Indication: ARTHRITIS
     Dosage: 400 mg, 3x/day
     Route: 048
     Dates: start: 20050124, end: 20050201
  2. IBUPROFEN [Suspect]
     Indication: PAIN
  3. APOREX [Concomitant]
     Indication: ARTHRALGIA
  4. CUPROFEN [Concomitant]
     Indication: ARTHRALGIA
     Dosage: UNK
     Route: 048
  5. CO-PROXAMOL [Concomitant]
     Dosage: 1-2, 3x/day
     Route: 048
  6. COLOFAC [Concomitant]
     Indication: ARTHRALGIA
     Dosage: 135 mg, 3x/day
     Route: 048

REACTIONS (4)
  - Pyrexia [Recovered/Resolved]
  - Dysgeusia [Recovered/Resolved]
  - Dizziness [Recovered/Resolved]
  - Nausea [Recovered/Resolved]
